FAERS Safety Report 16034259 (Version 1)
Quarter: 2019Q1

REPORT INFORMATION
  Report Type: Report from Study
  Country: CZ (occurrence: CZ)
  Receive Date: 20190305
  Receipt Date: 20190305
  Transmission Date: 20190418
  Serious: Yes (Hospitalization)
  Sender: FDA-Public Use
  Company Number: CZ-UCBSA-2019008103

PATIENT
  Age: 64 Year
  Sex: Male

DRUGS (1)
  1. CIMZIA [Suspect]
     Active Substance: CERTOLIZUMAB PEGOL
     Indication: RHEUMATOID ARTHRITIS
     Dosage: UNK
     Route: 058
     Dates: start: 20131021, end: 20181128

REACTIONS (2)
  - Postoperative wound infection [Recovered/Resolved]
  - Mediastinitis [Recovered/Resolved]

NARRATIVE: CASE EVENT DATE: 20181211
